FAERS Safety Report 7238092-7 (Version None)
Quarter: 2011Q1

REPORT INFORMATION
  Report Type: 
  Country: None (occurrence: None)
  Receive Date: 20110121
  Receipt Date: 20110119
  Transmission Date: 20110831
  Serious: Yes (Hospitalization)
  Sender: FDA-Public Use
  Company Number: B0695152A

PATIENT
  Sex: Female

DRUGS (1)
  1. ZYBAN [Suspect]
     Route: 065
     Dates: start: 20101101, end: 20101101

REACTIONS (3)
  - DERMATITIS BULLOUS [None]
  - STEVENS-JOHNSON SYNDROME [None]
  - RASH GENERALISED [None]
